FAERS Safety Report 5598670-8 (Version None)
Quarter: 2008Q1

REPORT INFORMATION
  Report Type: 
  Country: None (occurrence: None)
  Receive Date: 20080122
  Receipt Date: 20080116
  Transmission Date: 20080703
  Serious: Yes (Other)
  Sender: FDA-Public Use
  Company Number: CL-JNJFOC-20080101184

PATIENT
  Age: 32 Year
  Sex: Female
  Weight: 53 kg

DRUGS (2)
  1. INFLIXIMAB [Suspect]
     Indication: RHEUMATOID ARTHRITIS
     Route: 042
  2. IMURAN [Concomitant]

REACTIONS (5)
  - ACID FAST BACILLI INFECTION [None]
  - COUGH [None]
  - LUNG INFILTRATION [None]
  - PYREXIA [None]
  - TUBERCULOSIS [None]
